FAERS Safety Report 8195426-7 (Version None)
Quarter: 2012Q1

REPORT INFORMATION
  Report Type: 
  Country: None (occurrence: None)
  Receive Date: 20120308
  Receipt Date: 20120301
  Transmission Date: 20120608
  Serious: Yes (Hospitalization)
  Sender: FDA-Public Use
  Company Number: PHHY2012IE018652

PATIENT
  Sex: Male

DRUGS (2)
  1. TEGRETOL [Suspect]
     Dosage: 400 MG, TID
  2. TEGRETOL [Suspect]
     Indication: EPILEPSY
     Dosage: 400 MG, BID

REACTIONS (4)
  - LOWER RESPIRATORY TRACT INFECTION [None]
  - CONVULSION [None]
  - MALAISE [None]
  - DRUG LEVEL INCREASED [None]
